FAERS Safety Report 22354822 (Version 6)
Quarter: 2024Q1

REPORT INFORMATION
  Report Type: Spontaneous
  Country: US (occurrence: US)
  Receive Date: 20230523
  Receipt Date: 20240207
  Transmission Date: 20240409
  Serious: No
  Sender: FDA-Public Use
  Company Number: US-PFIZER INC-202300196352

PATIENT
  Age: 11 Year
  Sex: Male

DRUGS (2)
  1. GENOTROPIN [Suspect]
     Active Substance: SOMATROPIN
     Dosage: 2 MG (6 DAYS A WEEK)
  2. GENOTROPIN [Suspect]
     Active Substance: SOMATROPIN
     Dosage: 2.2 MG (6 DAYS PER WEEK)

REACTIONS (5)
  - Device information output issue [Unknown]
  - Device mechanical issue [Unknown]
  - Product storage error [Unknown]
  - Device breakage [Unknown]
  - Drug dose omission by device [Unknown]
